FAERS Safety Report 12391529 (Version 3)
Quarter: 2016Q2

REPORT INFORMATION
  Report Type: Spontaneous
  Country: HK (occurrence: HK)
  Receive Date: 20160521
  Receipt Date: 20160628
  Transmission Date: 20160815
  Serious: Yes (Hospitalization, Other)
  Sender: FDA-Public Use
  Company Number: HK-SUN PHARMACEUTICAL INDUSTRIES LTD-2016RR-116997

PATIENT
  Sex: Male

DRUGS (5)
  1. PARACETAMOL [Suspect]
     Active Substance: ACETAMINOPHEN
     Indication: ANALGESIC THERAPY
     Route: 064
  2. MAGNESIUM SULPHATE [Suspect]
     Active Substance: MAGNESIUM SULFATE
     Indication: MATERNAL DISTRESS DURING LABOUR
     Route: 064
  3. N-ACETYLCYSTINE [Suspect]
     Active Substance: ACETYLCYSTEINE
     Indication: HEPATIC FAILURE
     Route: 064
  4. LABETALOL [Suspect]
     Active Substance: LABETALOL\LABETALOL HYDROCHLORIDE
     Indication: MATERNAL DISTRESS DURING LABOUR
     Route: 064
  5. ATOSIBAN [Suspect]
     Active Substance: ATOSIBAN
     Indication: TOCOLYSIS
     Dosage: UNK
     Route: 064

REACTIONS (6)
  - Apgar score low [Unknown]
  - Necrotising colitis [Unknown]
  - Foetal exposure during pregnancy [Unknown]
  - Intestinal perforation [Unknown]
  - Premature baby [Unknown]
  - Meconium peritonitis [Unknown]
